FAERS Safety Report 17984737 (Version 13)
Quarter: 2022Q2

REPORT INFORMATION
  Report Type: Spontaneous
  Country: US (occurrence: US)
  Receive Date: 20200706
  Receipt Date: 20220429
  Transmission Date: 20220721
  Serious: No
  Sender: FDA-Public Use
  Company Number: US-DSJP-DSU-2020-119243

PATIENT
  Sex: Female

DRUGS (3)
  1. TURALIO [Suspect]
     Active Substance: PEXIDARTINIB HYDROCHLORIDE
     Indication: Giant cell tumour of tendon sheath
     Dosage: 400 MG, BID
     Route: 048
     Dates: start: 20200622
  2. TURALIO [Suspect]
     Active Substance: PEXIDARTINIB HYDROCHLORIDE
     Dosage: 400 MG, BID
     Route: 048
  3. TURALIO [Suspect]
     Active Substance: PEXIDARTINIB HYDROCHLORIDE
     Dosage: 400 MG, BID
     Route: 048
     Dates: start: 20200622

REACTIONS (18)
  - Fatigue [Unknown]
  - Dry eye [Unknown]
  - Photosensitivity reaction [Unknown]
  - Eye swelling [Unknown]
  - Product dose omission issue [Recovered/Resolved]
  - Memory impairment [Recovered/Resolved]
  - Hair colour changes [Not Recovered/Not Resolved]
  - Thirst [Unknown]
  - Rash [Recovered/Resolved]
  - Nausea [Not Recovered/Not Resolved]
  - Exposure to SARS-CoV-2 [Not Recovered/Not Resolved]
  - Malaise [Recovered/Resolved]
  - Pyrexia [Recovered/Resolved]
  - Asthenia [Recovered/Resolved]
  - Lymphadenopathy [Recovered/Resolved]
  - Dyspepsia [Unknown]
  - Temperature intolerance [Unknown]
  - Treatment noncompliance [Unknown]

NARRATIVE: CASE EVENT DATE: 20200101
